FAERS Safety Report 4852587-2 (Version None)
Quarter: 2005Q4

REPORT INFORMATION
  Report Type: 
  Country: None (occurrence: None)
  Receive Date: 20051125
  Receipt Date: 20050815
  Transmission Date: 20060501
  Serious: Yes (Other)
  Sender: FDA-Public Use
  Company Number: 2005097562

PATIENT
  Age: 68 Year
  Sex: Female

DRUGS (14)
  1. TIKOSYN [Suspect]
     Indication: ATRIAL FIBRILLATION
     Dosage: 250 MCG (125 MCG, BID INTERVAL: EVERY DAY), ORAL
     Route: 048
     Dates: start: 20050616, end: 20050704
  2. PREDNISONE [Suspect]
     Indication: PULMONARY FIBROSIS
     Dosage: 60 MG (EVERY OTHER DAY), ORAL
     Route: 048
     Dates: start: 20050501
  3. DIGOXIN [Concomitant]
  4. WARFARIN [Concomitant]
  5. COUMADIN [Concomitant]
  6. SYNTHROID [Concomitant]
  7. LIPITOR [Concomitant]
  8. FLOVENT [Concomitant]
  9. ASPIRIN [Concomitant]
  10. MULTIVITAMIN [Concomitant]
  11. ALTACE [Concomitant]
  12. DYRENIUM (TRIAMTERENE) [Concomitant]
  13. DIGOXIN [Concomitant]
  14. NORVASC [Concomitant]

REACTIONS (9)
  - ARRHYTHMIA [None]
  - ATRIAL FIBRILLATION [None]
  - CHEST PAIN [None]
  - DIZZINESS [None]
  - DRUG INEFFECTIVE [None]
  - DRUG INTERACTION [None]
  - INTERNATIONAL NORMALISED RATIO DECREASED [None]
  - NAUSEA [None]
  - TACHYCARDIA [None]
